FAERS Safety Report 4387975-4 (Version None)
Quarter: 2004Q2

REPORT INFORMATION
  Report Type: 
  Country: None (occurrence: None)
  Receive Date: 20040607
  Receipt Date: 20030411
  Transmission Date: 20050107
  Serious: No
  Sender: FDA-Public Use
  Company Number: 334286

PATIENT
  Age: 17 Year
  Sex: Male
  Weight: 69.9 kg

DRUGS (1)
  1. ACCUTANE [Suspect]
     Indication: ACNE
     Dosage: 40 MG 2 PER DAY ORAL
     Route: 048
     Dates: start: 20020819, end: 20030314

REACTIONS (2)
  - DEPRESSION [None]
  - HEADACHE [None]
